FAERS Safety Report 25643797 (Version 1)
Quarter: 2025Q3

REPORT INFORMATION
  Report Type: Spontaneous
  Country: CN (occurrence: CN)
  Receive Date: 20250805
  Receipt Date: 20250805
  Transmission Date: 20251020
  Serious: Yes (Other)
  Sender: SANOFI AVENTIS
  Company Number: CN-SA-2025SA227367

PATIENT
  Age: 69 Year
  Sex: Male
  Weight: 60 kg

DRUGS (12)
  1. ELOXATIN [Suspect]
     Active Substance: OXALIPLATIN
     Indication: Colon cancer
     Route: 041
     Dates: start: 20250723, end: 20250723
  2. ELOXATIN [Suspect]
     Active Substance: OXALIPLATIN
     Indication: Metastases to liver
  3. ELOXATIN [Suspect]
     Active Substance: OXALIPLATIN
     Indication: Benign lymph node neoplasm
  4. ELOXATIN [Suspect]
     Active Substance: OXALIPLATIN
     Indication: Hypertension
  5. LEVOLEUCOVORIN CALCIUM [Concomitant]
     Active Substance: LEVOLEUCOVORIN CALCIUM
     Indication: Colon cancer
     Dates: start: 20250723
  6. LEVOLEUCOVORIN CALCIUM [Concomitant]
     Active Substance: LEVOLEUCOVORIN CALCIUM
     Indication: Metastases to liver
  7. LEVOLEUCOVORIN CALCIUM [Concomitant]
     Active Substance: LEVOLEUCOVORIN CALCIUM
     Indication: Benign lymph node neoplasm
  8. LEVOLEUCOVORIN CALCIUM [Concomitant]
     Active Substance: LEVOLEUCOVORIN CALCIUM
     Indication: Hypertension
  9. FLUOROURACIL [Concomitant]
     Active Substance: FLUOROURACIL
     Indication: Colon cancer
     Dates: start: 20250723
  10. FLUOROURACIL [Concomitant]
     Active Substance: FLUOROURACIL
     Indication: Metastases to liver
     Dates: start: 20250723
  11. FLUOROURACIL [Concomitant]
     Active Substance: FLUOROURACIL
     Indication: Benign lymph node neoplasm
  12. FLUOROURACIL [Concomitant]
     Active Substance: FLUOROURACIL
     Indication: Hypertension

REACTIONS (4)
  - Infusion related reaction [Recovered/Resolved]
  - Oxygen saturation decreased [Recovered/Resolved]
  - Chest discomfort [Recovered/Resolved]
  - Product use in unapproved indication [Unknown]

NARRATIVE: CASE EVENT DATE: 20250723
